FAERS Safety Report 8203378 (Version 2)
Quarter: 2013Q2

REPORT INFORMATION
  Report Type: Spontaneous
  Country: US (occurrence: US)
  Receive Date: 20111027
  Receipt Date: 20130529
  Transmission Date: 20140414
  Serious: Yes (Death, Hospitalization, Other)
  Sender: FDA-Public Use
  Company Number: US-MILLENNIUM PHARMACEUTICALS, INC.-2011-04994

PATIENT
  Age: 69 Year
  Sex: Male
  Weight: 79.91 kg

DRUGS (14)
  1. VELCADE [Suspect]
     Indication: PLASMA CELL MYELOMA
     Dosage: 2 MG, CYCLIC
     Route: 042
     Dates: start: 20110426, end: 20110721
  2. DOXIL /00330902/ [Suspect]
     Indication: PLASMA CELL MYELOMA
     Dosage: 10 MG, CYCLIC
     Route: 042
     Dates: start: 20110426, end: 20110721
  3. DEXAMETHASONE [Suspect]
     Indication: PLASMA CELL MYELOMA
     Dosage: 40 MG, CYCLIC
     Route: 048
     Dates: start: 20110426, end: 20110721
  4. DEXAMETHASONE [Suspect]
     Dosage: 40 MG, CYCLIC
     Route: 042
     Dates: start: 20110426, end: 20110721
  5. LASIX                              /00032601/ [Concomitant]
     Indication: HYPERTENSION
     Dosage: 80 MG, CYCLIC
  6. ZOCOR [Concomitant]
     Indication: PRODUCT USED FOR UNKNOWN INDICATION
     Dosage: 40 MG, UNK
  7. XANAX [Concomitant]
     Indication: ANXIETY
     Dosage: 1 MG, PRN
  8. WELLBUTRIN                         /00700501/ [Concomitant]
     Indication: PRODUCT USED FOR UNKNOWN INDICATION
     Dosage: 300 MG, UNK
  9. CYMBALTA [Concomitant]
     Indication: PRODUCT USED FOR UNKNOWN INDICATION
     Dosage: 30 MG, UNK
  10. LEXAPRO [Concomitant]
     Indication: PRODUCT USED FOR UNKNOWN INDICATION
     Dosage: 20 MG, UNK
  11. AMBIEN [Concomitant]
     Indication: PRODUCT USED FOR UNKNOWN INDICATION
     Dosage: 10 MG, PRN
  12. COSOPT [Concomitant]
     Indication: PRODUCT USED FOR UNKNOWN INDICATION
     Route: 047
  13. PREVACID [Concomitant]
     Indication: PRODUCT USED FOR UNKNOWN INDICATION
     Dosage: 30 MG, UNK
  14. ALLOPURINOL [Concomitant]
     Indication: PRODUCT USED FOR UNKNOWN INDICATION
     Dosage: 300 MG, UNK

REACTIONS (5)
  - Cardiac arrest [Fatal]
  - Adrenal insufficiency [Unknown]
  - Orthostatic hypotension [Unknown]
  - Fall [Not Recovered/Not Resolved]
  - Loss of consciousness [Unknown]
